FAERS Safety Report 15960564 (Version 2)
Quarter: 2020Q1

REPORT INFORMATION
  Report Type: Report from Study
  Country: US (occurrence: US)
  Receive Date: 20190214
  Receipt Date: 20200122
  Transmission Date: 20200409
  Serious: Yes (Disabling, Other)
  Sender: FDA-Public Use
  Company Number: US-REGENERON PHARMACEUTICALS, INC.-2018-10280

PATIENT

DRUGS (12)
  1. EYLEA [Suspect]
     Active Substance: AFLIBERCEPT
     Dosage: UNK, LAST DOSE
     Route: 031
     Dates: start: 20161128, end: 20161128
  2. AVASTIN [Suspect]
     Active Substance: BEVACIZUMAB
     Dosage: UNK
     Dates: start: 20161221, end: 20161221
  3. PRAVASTATIN. [Concomitant]
     Active Substance: PRAVASTATIN
     Indication: PRODUCT USED FOR UNKNOWN INDICATION
     Dosage: 10 MG, QD
  4. EYLEA [Suspect]
     Active Substance: AFLIBERCEPT
     Indication: NEOVASCULAR AGE-RELATED MACULAR DEGENERATION
     Dosage: UNK
     Route: 031
     Dates: start: 20150415, end: 20161128
  5. AVASTIN [Suspect]
     Active Substance: BEVACIZUMAB
     Dosage: UNK
     Dates: start: 20160826, end: 20160826
  6. AVASTIN [Suspect]
     Active Substance: BEVACIZUMAB
     Indication: PRODUCT USED FOR UNKNOWN INDICATION
     Dosage: UNK
     Dates: start: 2003
  7. EYLEA [Suspect]
     Active Substance: AFLIBERCEPT
     Indication: CHOROIDAL NEOVASCULARISATION
     Dosage: UNK
     Route: 031
     Dates: start: 20160722, end: 20160722
  8. LUCENTIS [Suspect]
     Active Substance: RANIBIZUMAB
     Indication: PRODUCT USED FOR UNKNOWN INDICATION
     Dosage: UNK
     Dates: start: 201810, end: 201810
  9. LUCENTIS [Suspect]
     Active Substance: RANIBIZUMAB
     Dosage: UNK, LAST DOSE
     Dates: start: 201812
  10. AVASTIN [Suspect]
     Active Substance: BEVACIZUMAB
     Dosage: UNK
     Dates: start: 20160923, end: 20160923
  11. AVASTIN [Suspect]
     Active Substance: BEVACIZUMAB
     Dosage: UNK
     Dates: start: 20161028, end: 20161028
  12. LISINOPRIL. [Concomitant]
     Active Substance: LISINOPRIL
     Indication: PRODUCT USED FOR UNKNOWN INDICATION
     Dosage: 40 MG, QD

REACTIONS (9)
  - Optic nerve injury [Unknown]
  - Drug ineffective [Unknown]
  - Vitreous floaters [Unknown]
  - Condition aggravated [Unknown]
  - Retching [Unknown]
  - Ocular hypertension [Unknown]
  - Hypersensitivity [Unknown]
  - Blindness unilateral [Unknown]
  - Eye pain [Unknown]

NARRATIVE: CASE EVENT DATE: 20160727
